FAERS Safety Report 20052426 (Version 4)
Quarter: 2022Q4

REPORT INFORMATION
  Report Type: Report from Study
  Country: DE (occurrence: None)
  Receive Date: 20211110
  Receipt Date: 20221122
  Transmission Date: 20230113
  Serious: Yes (Hospitalization)
  Sender: FDA-Public Use
  Company Number: DE-ROCHE-2949185

PATIENT
  Age: 65 Year
  Sex: Female
  Weight: 73 kg

DRUGS (17)
  1. ATEZOLIZUMAB [Suspect]
     Active Substance: ATEZOLIZUMAB
     Indication: Triple negative breast cancer
     Dosage: ON 06/OCT/2021, SHE RECEIVED LAST DOSE OF ATEZOLIZUMAB PRIOR TO ONSET OF SERIOUS ADVERSE EVENT.
     Route: 041
     Dates: start: 20210630
  2. PACLITAXEL [Suspect]
     Active Substance: PACLITAXEL
     Indication: Triple negative breast cancer
     Dosage: ON 22/SEP/2021, SHE RECEIVED LAST DOSE OF PACLITAXEL PRIOR TO ONSET OF SERIOUS ADVERSE EVENT.
     Route: 042
     Dates: start: 20210714
  3. CARBOPLATIN [Suspect]
     Active Substance: CARBOPLATIN
     Indication: Triple negative breast cancer
     Dosage: ON 22/SEP/2021, SHE RECEIVED LAST DOSE OF CARBOPLATIN PRIOR TO ONSET OF SERIOUS ADVERSE EVENT.
     Route: 042
     Dates: start: 20210714
  4. EPIRUBICIN [Suspect]
     Active Substance: EPIRUBICIN
     Indication: Triple negative breast cancer
     Dosage: ON 06/OCT/2021, SHE RECEIVED LAST DOSE OF EPIRUBICIN PRIOR TO ONSET OF SERIOUS ADVERSE EVENT.
     Route: 042
     Dates: start: 20211006
  5. CYCLOPHOSPHAMIDE [Suspect]
     Active Substance: CYCLOPHOSPHAMIDE
     Indication: Triple negative breast cancer
     Dosage: ON 06/OCT/2021, SHE RECEIVED LAST DOSE OF CYCLOPHOSPHAMIDE PRIOR TO ONSET OF SERIOUS ADVERSE EVENT.
     Route: 042
     Dates: start: 20211006
  6. AKYNZEO [Concomitant]
     Dates: start: 20210714, end: 20210714
  7. AKYNZEO [Concomitant]
     Dates: start: 20211006
  8. DEXAMETHASONE [Concomitant]
     Active Substance: DEXAMETHASONE
     Dates: start: 20210714, end: 20210922
  9. DEXAMETHASONE [Concomitant]
     Active Substance: DEXAMETHASONE
     Dates: start: 20211006
  10. CLEMASTINE [Concomitant]
     Active Substance: CLEMASTINE
     Dates: start: 20210714, end: 20210922
  11. GRANISETRON [Concomitant]
     Active Substance: GRANISETRON
     Dates: start: 20210721, end: 20210922
  12. MOMETASONE FUROATE [Concomitant]
     Active Substance: MOMETASONE FUROATE
     Dates: start: 20210825
  13. MESNA [Concomitant]
     Active Substance: MESNA
     Dates: start: 20211006
  14. MESNA [Concomitant]
     Active Substance: MESNA
     Dates: start: 20211006
  15. NEUPOGEN [Concomitant]
     Active Substance: FILGRASTIM
     Dates: start: 20211015, end: 20211019
  16. COMIRNATY [Concomitant]
     Active Substance: TOZINAMERAN
     Dates: start: 20210605, end: 20210605
  17. COMIRNATY [Concomitant]
     Active Substance: TOZINAMERAN
     Dates: start: 20210710, end: 20210710

REACTIONS (1)
  - Febrile neutropenia [Recovered/Resolved]

NARRATIVE: CASE EVENT DATE: 20211016
